FAERS Safety Report 6498087-8 (Version None)
Quarter: 2009Q4

REPORT INFORMATION
  Report Type: 
  Country: None (occurrence: None)
  Receive Date: 20091215
  Receipt Date: 20091211
  Transmission Date: 20100525
  Serious: Yes (Other)
  Sender: FDA-Public Use
  Company Number: GB-PERRIGO-09GB005622

PATIENT
  Age: 75 Year
  Sex: Male

DRUGS (7)
  1. IBUPROFEN 16028/0013 200 MG [Suspect]
     Indication: PAIN
     Dosage: 400 MG, QD
     Route: 048
  2. CLOZARIL [Suspect]
     Indication: SCHIZOPHRENIA
     Dosage: 50 MG, QD
     Route: 048
     Dates: start: 20060926
  3. PERGOLIDE [Concomitant]
     Indication: PARKINSON'S DISEASE
     Dosage: 2 MG, QD
     Route: 048
  4. QUETIAPINE [Concomitant]
     Indication: PARKINSON'S DISEASE
     Dosage: 200 MG, BID
     Route: 048
  5. RIVASTIGMINE [Concomitant]
     Indication: PARKINSON'S DISEASE
     Dosage: 6 MG, BID
     Route: 048
  6. SINEMET [Concomitant]
     Indication: DRUG USE FOR UNKNOWN INDICATION
     Dosage: UNK
     Route: 048
  7. STALEVO 100 [Concomitant]
     Indication: PARKINSON'S DISEASE
     Dosage: UNK
     Route: 048

REACTIONS (2)
  - ANAEMIA [None]
  - EOSINOPHIL COUNT INCREASED [None]
